FAERS Safety Report 9053752 (Version 1)
Quarter: 2013Q1

REPORT INFORMATION
  Report Type: Spontaneous
  Country: MX (occurrence: MX)
  Receive Date: 20130208
  Receipt Date: 20130208
  Transmission Date: 20140127
  Serious: Yes (Other)
  Sender: FDA-Public Use
  Company Number: PHHY2013MX001235

PATIENT
  Age: 87 Year
  Sex: Male

DRUGS (5)
  1. CO-DIOVAN [Suspect]
     Indication: HYPERTENSION
     Dosage: 1 DF, 1 FILM COATED TABLET (VALSARTAN 160MG AND HYDROCHLOROTHIAZIDE 12.5MG) DAILY
     Route: 048
     Dates: start: 201001
  2. DIOVAN [Suspect]
     Indication: HYPERTENSION
     Dosage: 80 MG
  3. GALVUS MET [Concomitant]
     Dosage: 1 DF DAILY
     Dates: start: 201001
  4. B COMPLEX [Concomitant]
     Dosage: 1 DF DAILY
     Dates: start: 201210
  5. IRON [Concomitant]
     Dosage: 1 DF DAILY
     Dates: start: 201210

REACTIONS (3)
  - Cerebrovascular accident [Unknown]
  - Malaise [Unknown]
  - Blood pressure decreased [Recovered/Resolved]
